FAERS Safety Report 9162749 (Version 1)
Quarter: 2013Q1

REPORT INFORMATION
  Report Type: Spontaneous
  Country: IT (occurrence: None)
  Receive Date: 20130225
  Receipt Date: 20130225
  Transmission Date: 20140127
  Serious: Yes (Other)
  Sender: FDA-Public Use
  Company Number: GER/ITL/13/0028123

PATIENT
  Age: 58 Year
  Sex: Female

DRUGS (3)
  1. CITALOPRAM [Suspect]
     Indication: MAJOR DEPRESSION
     Dosage: 40 MG, 1 D, ORAL
     Route: 048
     Dates: start: 2009
  2. CITALOPRAM (CITALOPRAM) [Suspect]
     Indication: SOMATISATION DISORDER
  3. LEVOTHYROXINE (LEVOTHYROXINE) [Concomitant]

REACTIONS (13)
  - Pathological gambling [None]
  - Somatisation disorder [None]
  - Anxiety [None]
  - Dizziness [None]
  - Hypochondriasis [None]
  - Affective disorder [None]
  - Logorrhoea [None]
  - Road traffic accident [None]
  - Tremor [None]
  - Condition aggravated [None]
  - Femur fracture [None]
  - Economic problem [None]
  - Sleep disorder [None]
